FAERS Safety Report 22292719 (Version 1)
Quarter: 2023Q2

REPORT INFORMATION
  Report Type: Spontaneous
  Country: CA (occurrence: None)
  Receive Date: 20230508
  Receipt Date: 20230508
  Transmission Date: 20230721
  Serious: Yes (Hospitalization, Other)
  Sender: FDA-Public Use
  Company Number: CA-ROCHE-3340259

PATIENT
  Age: 56 Year
  Sex: Female

DRUGS (14)
  1. ACTEMRA [Suspect]
     Active Substance: TOCILIZUMAB
     Indication: Product used for unknown indication
     Route: 065
     Dates: start: 202009
  2. RUXIENCE [Suspect]
     Active Substance: RITUXIMAB-PVVR
     Indication: Rheumatoid arthritis
     Route: 042
     Dates: start: 20210331, end: 20210414
  3. RUXIENCE [Suspect]
     Active Substance: RITUXIMAB-PVVR
     Route: 042
     Dates: start: 20210414, end: 20210414
  4. RUXIENCE [Suspect]
     Active Substance: RITUXIMAB-PVVR
     Dosage: 4 HRS
     Route: 042
     Dates: start: 20211020, end: 20211020
  5. RUXIENCE [Suspect]
     Active Substance: RITUXIMAB-PVVR
     Dosage: 14 DAYS 10:20 HRS
     Route: 042
     Dates: start: 20211020, end: 20211104
  6. RUXIENCE [Suspect]
     Active Substance: RITUXIMAB-PVVR
     Route: 042
     Dates: start: 20211104
  7. RUXIENCE [Suspect]
     Active Substance: RITUXIMAB-PVVR
     Route: 042
     Dates: start: 20220503
  8. RUXIENCE [Suspect]
     Active Substance: RITUXIMAB-PVVR
     Route: 042
     Dates: start: 20221107, end: 20221121
  9. RUXIENCE [Suspect]
     Active Substance: RITUXIMAB-PVVR
     Route: 042
     Dates: start: 20210331, end: 20210414
  10. ERELZI [Concomitant]
     Active Substance: ETANERCEPT-SZZS
  11. KEVZARA [Concomitant]
     Active Substance: SARILUMAB
  12. ORENCIA [Concomitant]
     Active Substance: ABATACEPT
  13. METHOTREXATE [Concomitant]
     Active Substance: METHOTREXATE
  14. SYNTHROID [Concomitant]
     Active Substance: LEVOTHYROXINE SODIUM

REACTIONS (14)
  - Drug ineffective [Unknown]
  - Intervertebral disc compression [Recovered/Resolved]
  - Osteoarthritis [Recovered/Resolved]
  - Vein disorder [Recovered/Resolved]
  - Drug ineffective [Unknown]
  - Off label use [Unknown]
  - Chest discomfort [Recovered/Resolved]
  - Pain in extremity [Not Recovered/Not Resolved]
  - Arthralgia [Not Recovered/Not Resolved]
  - Arthralgia [Not Recovered/Not Resolved]
  - Arthropod bite [Recovered/Resolved]
  - Poor venous access [Recovered/Resolved]
  - Musculoskeletal stiffness [Recovering/Resolving]
  - Fatigue [Recovered/Resolved]

NARRATIVE: CASE EVENT DATE: 20210201
